FAERS Safety Report 15810842 (Version 2)
Quarter: 2019Q2

REPORT INFORMATION
  Report Type: Report from Study
  Country: US (occurrence: US)
  Receive Date: 20190111
  Receipt Date: 20190403
  Transmission Date: 20190711
  Serious: Yes (Hospitalization, Other)
  Sender: FDA-Public Use
  Company Number: US-ASTELLAS-2019US000054

PATIENT
  Sex: Female

DRUGS (4)
  1. TACROLIMUS. [Suspect]
     Active Substance: TACROLIMUS
     Indication: PRODUCT USED FOR UNKNOWN INDICATION
     Dosage: UNK UNK, UNKNOWN FREQ.
     Route: 065
     Dates: end: 201801
  2. PROGRAF [Suspect]
     Active Substance: TACROLIMUS\TACROLIMUS ANHYDROUS
     Indication: HEART TRANSPLANT
     Route: 065
  3. PROGRAF [Suspect]
     Active Substance: TACROLIMUS\TACROLIMUS ANHYDROUS
     Route: 065
  4. RAPAMUNE [Concomitant]
     Active Substance: SIROLIMUS
     Indication: PRODUCT USED FOR UNKNOWN INDICATION
     Dosage: UNK UNK, UNKNOWN FREQ.
     Route: 065

REACTIONS (14)
  - Cardiac failure congestive [Unknown]
  - Palpitations [Unknown]
  - Diabetic neuropathy [Unknown]
  - Deafness [Unknown]
  - Vomiting [Unknown]
  - Chest pain [Unknown]
  - Apparent death [Unknown]
  - Drug ineffective [Unknown]
  - Diabetes mellitus [Unknown]
  - Heart transplant rejection [Unknown]
  - Renal failure [Unknown]
  - Malaise [Unknown]
  - Hypertension [Unknown]
  - Drug hypersensitivity [Unknown]
